FAERS Safety Report 22738269 (Version 4)
Quarter: 2023Q4

REPORT INFORMATION
  Report Type: Report from Study
  Country: CH (occurrence: CH)
  Receive Date: 20230721
  Receipt Date: 20231016
  Transmission Date: 20240109
  Serious: Yes (Hospitalization)
  Sender: FDA-Public Use
  Company Number: CH-ABBVIE-5336952

PATIENT
  Age: 75 Year
  Sex: Female
  Weight: 40 kg

DRUGS (6)
  1. CARBIDOPA\LEVODOPA [Suspect]
     Active Substance: CARBIDOPA\LEVODOPA
     Indication: Parkinson^s disease
     Dosage: MD 7.2ML, CRD 5.4 ML/H, ED 2.8ML, CRN 3.5ML?FREQUENCY TEXT: 24H THERAPY
     Route: 050
     Dates: start: 20230105, end: 20230513
  2. CARBIDOPA\LEVODOPA [Suspect]
     Active Substance: CARBIDOPA\LEVODOPA
     Dosage: MD 7.2ML, CRD 5.3 ML/H, ED 4.5ML, CRN 3.4ML?FREQUENCY TEXT: 24H THERAPY
     Route: 050
     Dates: start: 20230607
  3. CARBIDOPA\LEVODOPA [Suspect]
     Active Substance: CARBIDOPA\LEVODOPA
     Route: 050
     Dates: start: 20220118
  4. CARBIDOPA\LEVODOPA [Suspect]
     Active Substance: CARBIDOPA\LEVODOPA
     Dosage: MD 7.2ML, CRD 5.4 ML/H, ED 4.5ML, CRN 3.4ML?FREQUENCY TEXT: 24H THERAPY
     Route: 050
     Dates: start: 20230602, end: 20230607
  5. CARBIDOPA\LEVODOPA [Suspect]
     Active Substance: CARBIDOPA\LEVODOPA
     Dosage: MD 7.2ML, CRD 5.8 ML/H, ED 4.0ML, CRN 3.4ML?FREQUENCY TEXT: 24H THERAPY
     Route: 050
     Dates: start: 20230513, end: 20230602
  6. APOMORPHINE [Concomitant]
     Active Substance: APOMORPHINE
     Indication: Product used for unknown indication
     Dates: start: 20220118

REACTIONS (8)
  - Fall [Not Recovered/Not Resolved]
  - Dysstasia [Not Recovered/Not Resolved]
  - Weight decreased [Not Recovered/Not Resolved]
  - Gait inability [Not Recovered/Not Resolved]
  - Stoma site infection [Not Recovered/Not Resolved]
  - Stoma site discharge [Recovering/Resolving]
  - Stoma creation [Not Recovered/Not Resolved]
  - Device alarm issue [Recovered/Resolved]

NARRATIVE: CASE EVENT DATE: 20230701
